FAERS Safety Report 10253908 (Version 3)
Quarter: 2014Q3

REPORT INFORMATION
  Report Type: Spontaneous
  Country: US (occurrence: US)
  Receive Date: 20140623
  Receipt Date: 20140821
  Transmission Date: 20150326
  Serious: Yes (Other)
  Sender: FDA-Public Use
  Company Number: US-ABBVIE-14P-163-1251330-00

PATIENT
  Age: 17 Year
  Sex: Female

DRUGS (5)
  1. SODIUM VALPROATE [Suspect]
     Active Substance: VALPROATE SODIUM
     Indication: BALLISMUS
     Dosage: DAILY
     Route: 065
     Dates: start: 198708, end: 19870902
  2. HALOPERIDOL. [Concomitant]
     Active Substance: HALOPERIDOL
     Indication: PRODUCT USED FOR UNKNOWN INDICATION
     Dosage: 5 MG AND THEN 2.25 MG/DAY
     Route: 058
  3. PREDONINE [Concomitant]
     Active Substance: PREDNISOLONE\PREDNISOLONE ACETATE\PREDNISOLONE SODIUM SUCCINATE
     Indication: PRODUCT USED FOR UNKNOWN INDICATION
     Dosage: (CON)
     Dates: start: 19870902, end: 19870917
  4. PHENYTOIN. [Suspect]
     Active Substance: PHENYTOIN
     Indication: BALLISMUS
     Dosage: DAILY
     Route: 065
     Dates: start: 198708, end: 19870902
  5. TIAPRIDE [Concomitant]
     Active Substance: TIAPRIDE
     Indication: PRODUCT USED FOR UNKNOWN INDICATION

REACTIONS (2)
  - Agranulocytosis [Recovered/Resolved]
  - Off label use [Unknown]
